FAERS Safety Report 5269953-6 (Version None)
Quarter: 2007Q1

REPORT INFORMATION
  Report Type: 
  Country: None (occurrence: None)
  Receive Date: 20061212
  Receipt Date: 20051114
  Transmission Date: 20070707
  Serious: No
  Sender: FDA-Public Use
  Company Number: RS005633-USA

PATIENT
  Age: 89 Year
  Sex: Male
  Weight: 82 kg

DRUGS (5)
  1. ACIPHEX [Suspect]
     Indication: GASTROOESOPHAGEAL REFLUX DISEASE
     Dosage: 20 MG, UNK; ORAL
     Route: 048
     Dates: start: 20051110
  2. ATENOLOL [Concomitant]
  3. LIPITOR [Concomitant]
  4. ASPIRIN [Concomitant]
  5. SOLENDAC (SULINDAC) [Concomitant]

REACTIONS (1)
  - DYSURIA [None]
